FAERS Safety Report 14003725 (Version 1)
Quarter: 2017Q3

REPORT INFORMATION
  Report Type: Spontaneous
  Country: US (occurrence: US)
  Receive Date: 20170922
  Receipt Date: 20170922
  Transmission Date: 20171128
  Serious: No
  Sender: FDA-Public Use
  Company Number: US-JNJFOC-20170708524

PATIENT
  Sex: Female
  Weight: 68.04 kg

DRUGS (4)
  1. FENTANYL TRANSDERMAL SYSTEM [Suspect]
     Active Substance: FENTANYL
     Indication: PAIN
     Dosage: STARTED ABOUT FIVE MONTHS AGO
     Route: 062
     Dates: start: 2017
  2. OXYCODONE [Concomitant]
     Active Substance: OXYCODONE
     Indication: PAIN
     Route: 048
  3. FENTANYL. [Suspect]
     Active Substance: FENTANYL
     Indication: PRODUCT USED FOR UNKNOWN INDICATION
     Dosage: STARTED ABOUT SIX MONTHS AGO
     Route: 065
     Dates: start: 2017
  4. ALEVE [Concomitant]
     Active Substance: NAPROXEN SODIUM
     Indication: PAIN
     Dosage: SIX TIMES A DAY AS NEEDED
     Route: 048

REACTIONS (8)
  - Off label use [Unknown]
  - Astigmatism [Recovered/Resolved]
  - Wrong technique in product usage process [Unknown]
  - Product quality issue [Unknown]
  - Poor quality drug administered [Unknown]
  - Product adhesion issue [Unknown]
  - Application site rash [Recovering/Resolving]
  - Underdose [Unknown]

NARRATIVE: CASE EVENT DATE: 2017
